FAERS Safety Report 18052292 (Version 2)
Quarter: 2021Q1

REPORT INFORMATION
  Report Type: Spontaneous
  Country: US (occurrence: US)
  Receive Date: 20200721
  Receipt Date: 20210326
  Transmission Date: 20210419
  Serious: No
  Sender: FDA-Public Use
  Company Number: US-VIFOR (INTERNATIONAL) INC.-VIT-2020-06779

PATIENT
  Sex: Female

DRUGS (3)
  1. VELTASSA [Suspect]
     Active Substance: PATIROMER
     Indication: HYPERKALAEMIA
  2. VELTASSA [Suspect]
     Active Substance: PATIROMER
  3. VELTASSA [Suspect]
     Active Substance: PATIROMER
     Route: 048

REACTIONS (4)
  - Faeces hard [Not Recovered/Not Resolved]
  - Constipation [Not Recovered/Not Resolved]
  - Off label use [Unknown]
  - Flatulence [Not Recovered/Not Resolved]
